FAERS Safety Report 6656067-3 (Version None)
Quarter: 2010Q1

REPORT INFORMATION
  Report Type: 
  Country: None (occurrence: None)
  Receive Date: 20100329
  Receipt Date: 20100325
  Transmission Date: 20100710
  Serious: Yes (Disabling, Other)
  Sender: FDA-Public Use
  Company Number: A0851998A

PATIENT
  Age: 63 Year
  Sex: Male

DRUGS (2)
  1. AVANDIA [Suspect]
     Route: 048
     Dates: start: 20040630, end: 20050701
  2. LANTUS [Concomitant]

REACTIONS (1)
  - MYOCARDIAL INFARCTION [None]
